FAERS Safety Report 10261123 (Version 4)
Quarter: 2014Q3

REPORT INFORMATION
  Report Type: Spontaneous
  Country: US (occurrence: US)
  Receive Date: 20140626
  Receipt Date: 20140820
  Transmission Date: 20150326
  Serious: No
  Sender: FDA-Public Use
  Company Number: US-JNJFOC-20140608410

PATIENT
  Sex: Female
  Weight: 99.79 kg

DRUGS (7)
  1. VOLTAREN [Concomitant]
     Active Substance: DICLOFENAC SODIUM
     Indication: HERPES SIMPLEX
     Route: 065
     Dates: start: 2003
  2. ICAR [Concomitant]
     Route: 065
     Dates: start: 2004
  3. PREVACID [Concomitant]
     Active Substance: LANSOPRAZOLE
     Indication: GASTROOESOPHAGEAL REFLUX DISEASE
     Route: 065
     Dates: start: 2000
  4. DURAGESIC [Suspect]
     Active Substance: FENTANYL
     Indication: BACK PAIN
     Dosage: 100 UG/HR + 50 UG/HR
     Route: 062
  5. SUDAFED (PSEUDOEPHEDRINE HYDROCHLORIDE) [Concomitant]
     Indication: SINUS CONGESTION
     Route: 065
  6. DURAGESIC [Suspect]
     Active Substance: FENTANYL
     Indication: PAIN IN EXTREMITY
     Dosage: 100 UG/HR + 50 UG/HR
     Route: 062
  7. MELATONIN [Concomitant]
     Active Substance: MELATONIN
     Indication: INSOMNIA
     Route: 065
     Dates: start: 2012

REACTIONS (4)
  - Wrong technique in drug usage process [Unknown]
  - Product quality issue [Unknown]
  - Application site perspiration [Unknown]
  - Application site discolouration [Not Recovered/Not Resolved]
